FAERS Safety Report 16599215 (Version 4)
Quarter: 2019Q4

REPORT INFORMATION
  Report Type: Report from Study
  Country: US (occurrence: US)
  Receive Date: 20190719
  Receipt Date: 20191202
  Transmission Date: 20200122
  Serious: Yes (Hospitalization)
  Sender: FDA-Public Use
  Company Number: US-ACTELION-A-US2018-181810

PATIENT
  Sex: Female
  Weight: 81.63 kg

DRUGS (4)
  1. ORENITRAM [Suspect]
     Active Substance: TREPROSTINIL
     Indication: PRODUCT USED FOR UNKNOWN INDICATION
     Route: 048
  2. SILDENAFIL CITRATE. [Concomitant]
     Active Substance: SILDENAFIL CITRATE
  3. OPSUMIT [Suspect]
     Active Substance: MACITENTAN
     Indication: PULMONARY ARTERIAL HYPERTENSION
     Dosage: 10 MG, UNK
     Route: 048
  4. REMODULIN [Suspect]
     Active Substance: TREPROSTINIL
     Indication: PRODUCT USED FOR UNKNOWN INDICATION
     Dosage: UNK
     Route: 065

REACTIONS (16)
  - Therapy change [Unknown]
  - Infusion site irritation [Unknown]
  - Dyspnoea exertional [Unknown]
  - Dyspnoea [Unknown]
  - Infusion site pain [Unknown]
  - Infusion site ulcer [Unknown]
  - Infusion site swelling [Unknown]
  - Dizziness [Unknown]
  - Infusion site erythema [Unknown]
  - Hyperventilation [Unknown]
  - Unevaluable event [Unknown]
  - Nausea [Unknown]
  - Headache [Unknown]
  - Infusion site haemorrhage [Unknown]
  - Sinusitis [Unknown]
  - Diarrhoea [Unknown]
